FAERS Safety Report 10642998 (Version 1)
Quarter: 2014Q4

REPORT INFORMATION
  Report Type: Spontaneous
  Country: US (occurrence: None)
  Receive Date: 20141121
  Receipt Date: 20141121
  Transmission Date: 20150529
  Serious: No
  Sender: FDA-Public Use
  Company Number: 163-10004-14071343

PATIENT
  Age: 70 Year
  Sex: Male
  Weight: 108.86 kg

DRUGS (1)
  1. OTEZLA [Suspect]
     Active Substance: APREMILAST
     Indication: PSORIASIS
     Route: 048
     Dates: start: 20140612, end: 20140614

REACTIONS (6)
  - Vomiting [None]
  - Diarrhoea [None]
  - Nausea [None]
  - Dizziness [None]
  - Headache [None]
  - Confusional state [None]

NARRATIVE: CASE EVENT DATE: 20140630
